FAERS Safety Report 7815885-6 (Version None)
Quarter: 2011Q4

REPORT INFORMATION
  Report Type: 
  Country: None (occurrence: None)
  Receive Date: 20111014
  Receipt Date: 20111006
  Transmission Date: 20120403
  Serious: Yes (Other)
  Sender: FDA-Public Use
  Company Number: US-ROCHE-1002720

PATIENT

DRUGS (2)
  1. FOSAMAX [Suspect]
     Indication: OSTEOPOROSIS
     Dates: start: 19990101, end: 20080101
  2. BONIVA [Suspect]
     Indication: OSTEOPOROSIS
     Dates: start: 20080101, end: 20090101

REACTIONS (2)
  - ANXIETY [None]
  - INJURY [None]
